FAERS Safety Report 8950369 (Version 1)
Quarter: 2012Q4

REPORT INFORMATION
  Report Type: 
  Country: US (occurrence: US)
  Receive Date: 20121207
  Receipt Date: 20121207
  Transmission Date: 20130627
  Serious: No
  Sender: FDA-Public Use
  Company Number: US-PFIZER INC-2012307971

PATIENT
  Age: 36 Year
  Sex: Female
  Weight: 63.49 kg

DRUGS (4)
  1. PRISTIQ [Suspect]
     Indication: DEPRESSION
     Dosage: 100 mg, daily
     Dates: start: 201110
  2. TRILEPTAL [Concomitant]
     Indication: AFFECTIVE DISORDER
     Dosage: 300 mg, 3x/day
  3. LORAZEPAM [Concomitant]
     Indication: ANXIETY
     Dosage: 0.5 mg, 3x/day
  4. ALEVE [Concomitant]
     Indication: PAIN
     Dosage: 220mg two tablets, 2x/day

REACTIONS (1)
  - Rhinorrhoea [Not Recovered/Not Resolved]
